FAERS Safety Report 7276127-6 (Version None)
Quarter: 2011Q1

REPORT INFORMATION
  Report Type: 
  Country: None (occurrence: None)
  Receive Date: 20110204
  Receipt Date: 20110128
  Transmission Date: 20110831
  Serious: Yes (Death, Disabling, Other)
  Sender: FDA-Public Use
  Company Number: US-CELGENEUS-163-21880-10112189

PATIENT
  Sex: Male

DRUGS (5)
  1. CALCIUM [Concomitant]
     Route: 065
  2. REVLIMID [Suspect]
     Route: 048
     Dates: start: 20080811, end: 20101109
  3. REVLIMID [Suspect]
     Route: 048
     Dates: start: 20071001, end: 20080208
  4. MAGNESIUM [Concomitant]
     Route: 065
  5. REVLIMID [Suspect]
     Route: 048
     Dates: start: 20080710

REACTIONS (2)
  - PANCYTOPENIA [None]
  - DEATH [None]
